FAERS Safety Report 7449658-3 (Version None)
Quarter: 2011Q1

REPORT INFORMATION
  Report Type: 
  Country: None (occurrence: None)
  Receive Date: 20110302
  Receipt Date: 20101203
  Transmission Date: 20110831
  Serious: No
  Sender: FDA-Public Use
  Company Number: 023150

PATIENT
  Sex: Female

DRUGS (11)
  1. TRAMADOL HCL [Concomitant]
  2. SERTRALINE HYDROCHLORIDE [Concomitant]
  3. METRONIDAZOLE [Concomitant]
  4. CODEINE SULFATE [Concomitant]
  5. RESTORIL [Concomitant]
  6. MULTIVIT [Concomitant]
  7. VERAPAMIL [Concomitant]
  8. AZATHIOPRINE [Concomitant]
  9. MESALAMINE [Concomitant]
  10. CIMZIA [Suspect]
     Indication: CROHN'S DISEASE
     Dosage: 200 MG 1X/2 WEEKS SUBCUTANEOUS
     Route: 058
  11. HYDROCODONE BITARTRATE [Concomitant]

REACTIONS (2)
  - INTESTINAL FISTULA [None]
  - ANAEMIA [None]
